FAERS Safety Report 16996716 (Version 17)
Quarter: 2024Q4

REPORT INFORMATION
  Report Type: Report from Study
  Country: CO (occurrence: CO)
  Receive Date: 20191105
  Receipt Date: 20241121
  Transmission Date: 20250115
  Serious: Yes (Hospitalization, Disabling, Other)
  Sender: NOVARTIS
  Company Number: NVSC2019CO022097

PATIENT
  Age: 60 Year
  Sex: Female
  Weight: 78 kg

DRUGS (5)
  1. KISQALI [Suspect]
     Active Substance: RIBOCICLIB
     Indication: Breast cancer metastatic
     Dosage: 600 MG, QD (ONCE DAILY)
     Route: 048
     Dates: start: 20190528
  2. KISQALI [Suspect]
     Active Substance: RIBOCICLIB
     Indication: Hormone receptor positive HER2 negative breast cancer
  3. FEMARA [Suspect]
     Active Substance: LETROZOLE
     Indication: Breast cancer
     Dosage: 2.5 MG, QD (STARTED 5 YEARS AGO)
     Route: 048
     Dates: start: 20190528
  4. FEMARA [Suspect]
     Active Substance: LETROZOLE
     Dosage: 2.5 MG, QD
     Route: 048
  5. CALCIUM [Concomitant]
     Active Substance: CALCIUM
     Indication: Product used for unknown indication
     Dosage: UNK
     Route: 065

REACTIONS (23)
  - Thrombosis [Recovered/Resolved]
  - General physical health deterioration [Unknown]
  - Gait disturbance [Unknown]
  - Mobility decreased [Recovered/Resolved]
  - Muscle atrophy [Unknown]
  - Metastases to peripheral nervous system [Unknown]
  - Metastases to lung [Recovered/Resolved]
  - Pain in extremity [Unknown]
  - Influenza [Unknown]
  - Oropharyngeal pain [Unknown]
  - Headache [Unknown]
  - Peripheral swelling [Not Recovered/Not Resolved]
  - Erythema [Unknown]
  - Lacrimation increased [Unknown]
  - Hypertension [Unknown]
  - Weight increased [Unknown]
  - Weight decreased [Unknown]
  - Nerve injury [Unknown]
  - Eye allergy [Unknown]
  - Hypersensitivity [Unknown]
  - Erythema of eyelid [Unknown]
  - Eyelid skin dryness [Unknown]
  - Pruritus [Unknown]

NARRATIVE: CASE EVENT DATE: 20190911
